FAERS Safety Report 9901612 (Version 2)
Quarter: 2014Q1

REPORT INFORMATION
  Report Type: Spontaneous
  Country: US (occurrence: US)
  Receive Date: 20140217
  Receipt Date: 20140217
  Transmission Date: 20141002
  Serious: No
  Sender: FDA-Public Use
  Company Number: US-GILEAD-2011-0044576

PATIENT
  Age: 72 Year
  Sex: Female

DRUGS (4)
  1. LETAIRIS [Suspect]
     Indication: PULMONARY HYPERTENSION
     Dosage: 5 MG, UNK
     Route: 048
     Dates: start: 20090925
  2. LETAIRIS [Suspect]
     Indication: FIBROSIS
  3. LETAIRIS [Suspect]
     Indication: SYSTEMIC LUPUS ERYTHEMATOSUS
  4. LETAIRIS [Suspect]
     Indication: PULMONARY EMBOLISM

REACTIONS (4)
  - Oxygen saturation decreased [Unknown]
  - Myalgia [Unknown]
  - Pain [Unknown]
  - Nasopharyngitis [Unknown]
